FAERS Safety Report 25848572 (Version 3)
Quarter: 2025Q4

REPORT INFORMATION
  Report Type: Spontaneous
  Country: JP (occurrence: JP)
  Receive Date: 20250925
  Receipt Date: 20251021
  Transmission Date: 20260118
  Serious: Yes (Other)
  Sender: PFIZER
  Company Number: JP-ONO-2025JP017140

PATIENT
  Age: 7 Decade
  Sex: Female

DRUGS (2)
  1. BRAFTOVI [Suspect]
     Active Substance: ENCORAFENIB
     Indication: Colon cancer
     Dosage: 300 MG (2)
     Route: 048
     Dates: start: 202509, end: 202509
  2. MEKTOVI [Suspect]
     Active Substance: BINIMETINIB
     Indication: Colon cancer
     Dosage: 45 MG (1)
     Route: 048
     Dates: start: 202509, end: 202509

REACTIONS (3)
  - Serous retinal detachment [Recovered/Resolved]
  - Visual field defect [Recovering/Resolving]
  - Visual impairment [Recovering/Resolving]

NARRATIVE: CASE EVENT DATE: 20250901
